FAERS Safety Report 6375927-4 (Version None)
Quarter: 2009Q3

REPORT INFORMATION
  Report Type: 
  Country: None (occurrence: None)
  Receive Date: 20090917
  Receipt Date: 20090904
  Transmission Date: 20100115
  Serious: Yes (Death)
  Sender: FDA-Public Use
  Company Number: ADR17182009

PATIENT
  Age: 43 Year
  Sex: Female

DRUGS (8)
  1. CITALOPRAM [Suspect]
     Indication: DEPRESSION
     Dosage: 10 MG
     Dates: start: 20030422, end: 20060201
  2. AMLODIPINE [Concomitant]
  3. BUDESONIDE [Concomitant]
  4. DIAZEPAM [Concomitant]
  5. FENTANYL [Concomitant]
  6. RANITIDINE [Concomitant]
  7. TERBUTALINE SULFATE [Concomitant]
  8. ZOPICLONE [Concomitant]

REACTIONS (1)
  - DRUG TOXICITY [None]
